FAERS Safety Report 4555406-7 (Version None)
Quarter: 2005Q1

REPORT INFORMATION
  Report Type: 
  Country: None (occurrence: None)
  Receive Date: 20041228
  Receipt Date: 20041025
  Transmission Date: 20050727
  Serious: Yes (Disabling)
  Sender: FDA-Public Use
  Company Number: PHEH2004US11334

PATIENT
  Age: 65 Year
  Sex: Female

DRUGS (2)
  1. PAMIDRONATE DISODIUM [Suspect]
     Indication: OSTEITIS DEFORMANS
     Dosage: 60 MG Q3-6MOS, INTRAVENOUS
     Route: 042
     Dates: start: 19910101, end: 19950101
  2. ALENDRONIC ACID(ALENDRONIC ACID) [Suspect]
     Indication: OSTEOPENIA
     Dosage: 70MG/QWK
     Dates: start: 19980101, end: 20040101

REACTIONS (2)
  - OSTEONECROSIS [None]
  - TOOTH EXTRACTION [None]
